FAERS Safety Report 9566691 (Version 1)
Quarter: 2013Q3

REPORT INFORMATION
  Report Type: Spontaneous
  Country: US (occurrence: US)
  Receive Date: 20130930
  Receipt Date: 20130930
  Transmission Date: 20140515
  Serious: Yes (Hospitalization)
  Sender: FDA-Public Use
  Company Number: US-AMGEN-USASP2012061899

PATIENT
  Age: 49 Year
  Sex: Female

DRUGS (18)
  1. ENBREL [Suspect]
     Indication: RHEUMATOID ARTHRITIS
     Dosage: 25 MG, 2 TIMES/WK
     Route: 058
  2. LYRICA [Concomitant]
  3. XANAX [Concomitant]
  4. SOMA [Concomitant]
  5. OXYCONTIN [Concomitant]
  6. LORTAB                             /00607101/ [Concomitant]
  7. ASA [Concomitant]
     Dosage: 81 MG, UNK
  8. BUSPAR [Concomitant]
     Dosage: UNK
  9. CYMBALTA [Concomitant]
     Dosage: UNK
  10. NEXIUM                             /01479302/ [Concomitant]
     Dosage: UNK
  11. VITAMIN D                          /00107901/ [Concomitant]
     Dosage: UNK
  12. CALCIUM [Concomitant]
     Dosage: UNK
  13. BONIVA [Concomitant]
     Dosage: UNK
  14. METHOTREXATE [Concomitant]
     Dosage: UNK
  15. METOPROLOL [Concomitant]
     Dosage: UNK
  16. POTASSIUM [Concomitant]
     Dosage: UNK
  17. PREDNISONE [Concomitant]
     Dosage: UNK
  18. PHENERGAN                          /00033001/ [Concomitant]
     Dosage: UNK

REACTIONS (1)
  - Convulsion [Recovered/Resolved]
